FAERS Safety Report 25087081 (Version 1)
Quarter: 2025Q1

REPORT INFORMATION
  Report Type: Spontaneous
  Country: US (occurrence: US)
  Receive Date: 20250318
  Receipt Date: 20250318
  Transmission Date: 20250408
  Serious: Yes (Death, Hospitalization, Other)
  Sender: EXELA PHARMA SCIENCES
  Company Number: US-EXELAPHARMA-2025EXLA00018

PATIENT
  Age: 53 Year
  Sex: Male

DRUGS (1)
  1. FENTANYL CITRATE [Suspect]
     Active Substance: FENTANYL CITRATE
     Indication: Product used for unknown indication

REACTIONS (7)
  - Leukoencephalopathy [Fatal]
  - Death [Fatal]
  - Accidental overdose [Fatal]
  - Hypoxia [Unknown]
  - Hypotension [Unknown]
  - Apnoea [Unknown]
  - Pyrexia [Unknown]
